FAERS Safety Report 25915807 (Version 1)
Quarter: 2025Q4

REPORT INFORMATION
  Report Type: Spontaneous
  Country: US (occurrence: US)
  Receive Date: 20251013
  Receipt Date: 20251013
  Transmission Date: 20260118
  Serious: No
  Sender: BIOMARIN
  Company Number: US-BIOMARINAP-US-2025-169217

PATIENT
  Age: 19 Year
  Sex: Female

DRUGS (1)
  1. VIMIZIM [Suspect]
     Active Substance: ELOSULFASE ALFA
     Indication: Mucopolysaccharidosis IV
     Dosage: 80 MILLIGRAM, QW
     Dates: start: 201910

REACTIONS (3)
  - Vein rupture [Unknown]
  - Injection site pain [Unknown]
  - Vascular access complication [Unknown]

NARRATIVE: CASE EVENT DATE: 20251002
